FAERS Safety Report 7012858-0 (Version None)
Quarter: 2010Q3

REPORT INFORMATION
  Report Type: 
  Country: None (occurrence: None)
  Receive Date: 20100924
  Receipt Date: 20100915
  Transmission Date: 20110219
  Serious: Yes (Other)
  Sender: FDA-Public Use
  Company Number: US-US-EMD SERONO, INC.-7017837

PATIENT
  Sex: Female

DRUGS (2)
  1. REBIF [Suspect]
     Indication: MULTIPLE SCLEROSIS
     Route: 058
     Dates: start: 20100617, end: 20100910
  2. YAZ [Concomitant]
     Dates: end: 20100101

REACTIONS (2)
  - CERVIX HAEMORRHAGE UTERINE [None]
  - DRUG EXPOSURE DURING PREGNANCY [None]
